FAERS Safety Report 7580330-5 (Version None)
Quarter: 2011Q2

REPORT INFORMATION
  Report Type: 
  Country: None (occurrence: None)
  Receive Date: 20110629
  Receipt Date: 20110617
  Transmission Date: 20111010
  Serious: Yes (Hospitalization)
  Sender: FDA-Public Use
  Company Number: US-ROCHE-777175

PATIENT
  Sex: Male
  Weight: 88 kg

DRUGS (6)
  1. PEGINTERFERON ALFA-2A [Suspect]
     Route: 065
     Dates: start: 20110511
  2. RIBAVIRIN [Suspect]
     Route: 048
     Dates: start: 20110511
  3. PREGABALIN [Concomitant]
     Indication: PAIN
  4. TELAPREVIR [Suspect]
     Route: 048
     Dates: start: 20110511
  5. LEXAPRO [Concomitant]
     Indication: DEPRESSION
     Route: 048
  6. OXYCONTIN [Concomitant]

REACTIONS (2)
  - MENTAL STATUS CHANGES [None]
  - MYOCLONUS [None]
